FAERS Safety Report 15132535 (Version 1)
Quarter: 2018Q3

REPORT INFORMATION
  Report Type: Report from Study
  Country: IT (occurrence: IT)
  Receive Date: 20180712
  Receipt Date: 20180712
  Transmission Date: 20181010
  Serious: Yes (Other)
  Sender: FDA-Public Use
  Company Number: IT-ROCHE-2152970

PATIENT
  Age: 63 Year
  Sex: Male

DRUGS (3)
  1. VEMURAFENIB. [Suspect]
     Active Substance: VEMURAFENIB
     Indication: HAIRY CELL LEUKAEMIA
     Dosage: LAST DOSE PRIOR TO SERIOUS ADVERSE EVENT: 13/JUN/2018
     Route: 048
     Dates: start: 20180516
  2. ACYCLOVIR. [Concomitant]
     Active Substance: ACYCLOVIR
     Indication: ANTIVIRAL PROPHYLAXIS
     Route: 048
     Dates: start: 20180614
  3. OBINUTUZUMAB. [Suspect]
     Active Substance: OBINUTUZUMAB
     Indication: HAIRY CELL LEUKAEMIA
     Dosage: ON DAY 1, 8, AND 15 CYCLE 1?1000 MG DAY 1 CYCLE 2?6?LAST DOSE PRIOR TO SERIOUS ADVERSE EVENT: 31/MAY
     Route: 042
     Dates: start: 20180516

REACTIONS (1)
  - Basal cell carcinoma [Recovered/Resolved]

NARRATIVE: CASE EVENT DATE: 20180620
